FAERS Safety Report 14334527 (Version 1)
Quarter: 2017Q4

REPORT INFORMATION
  Report Type: Spontaneous
  Country: US (occurrence: US)
  Receive Date: 20171228
  Receipt Date: 20171228
  Transmission Date: 20180321
  Serious: No
  Sender: FDA-Public Use
  Company Number: US-DRREDDYS-USA/USA/16/0084885

PATIENT
  Sex: Female

DRUGS (5)
  1. HABITROL [Suspect]
     Active Substance: NICOTINE
     Indication: SMOKING CESSATION THERAPY
     Route: 062
     Dates: start: 20161113
  2. HABITROL [Suspect]
     Active Substance: NICOTINE
     Route: 062
  3. HABITROL [Suspect]
     Active Substance: NICOTINE
     Route: 062
  4. HABITROL [Suspect]
     Active Substance: NICOTINE
     Route: 062
  5. CHANTIX [Concomitant]
     Active Substance: VARENICLINE TARTRATE
     Indication: SMOKING CESSATION THERAPY
     Route: 048

REACTIONS (6)
  - Abnormal dreams [Recovering/Resolving]
  - Nicotine dependence [Unknown]
  - Drug ineffective [Unknown]
  - Drug dose omission [Unknown]
  - Product adhesion issue [Unknown]
  - Stress [Recovering/Resolving]
